FAERS Safety Report 6854399-7 (Version None)
Quarter: 2010Q3

REPORT INFORMATION
  Report Type: 
  Country: None (occurrence: None)
  Receive Date: 20100717
  Receipt Date: 20080103
  Transmission Date: 20110219
  Serious: No
  Sender: FDA-Public Use
  Company Number: US-PFIZER INC-2008001912

PATIENT
  Sex: Male
  Weight: 81.818 kg

DRUGS (2)
  1. CHANTIX [Suspect]
     Indication: SMOKING CESSATION THERAPY
     Dates: start: 20071024
  2. PLENDIL [Concomitant]
     Indication: HYPERTENSION

REACTIONS (3)
  - DEPRESSION [None]
  - NAUSEA [None]
  - SOMNOLENCE [None]
